FAERS Safety Report 10732194 (Version 1)
Quarter: 2015Q1

REPORT INFORMATION
  Report Type: Spontaneous
  Country: US (occurrence: None)
  Receive Date: 20150120
  Receipt Date: 20150120
  Transmission Date: 20150721
  Serious: Yes (Death)
  Sender: FDA-Public Use
  Company Number: POI05802001500001

PATIENT
  Age: 42 Year
  Sex: Male

DRUGS (5)
  1. ETODOLAC. [Suspect]
     Active Substance: ETODOLAC
     Dosage: PER ORAL
     Route: 048
     Dates: end: 2013
  2. QUETIAPINE [Suspect]
     Active Substance: QUETIAPINE
     Dosage: PER ORAL
     Route: 048
     Dates: end: 2013
  3. DESVENLAFAXINE. [Suspect]
     Active Substance: DESVENLAFAXINE
     Dosage: PER ORAL
     Route: 048
     Dates: end: 2013
  4. METOPROLOL [Suspect]
     Active Substance: METOPROLOL
     Dosage: PER ORAL
     Route: 048
     Dates: end: 2013
  5. LORAZEPAM. [Suspect]
     Active Substance: LORAZEPAM
     Dosage: PER ORAL
     Route: 048
     Dates: end: 2013

REACTIONS (2)
  - Exposure via ingestion [None]
  - Completed suicide [None]

NARRATIVE: CASE EVENT DATE: 2013
